FAERS Safety Report 7690429-0 (Version None)
Quarter: 2011Q3

REPORT INFORMATION
  Report Type: 
  Country: None (occurrence: None)
  Receive Date: 20110812
  Receipt Date: 20110803
  Transmission Date: 20111222
  Serious: Yes (Other)
  Sender: FDA-Public Use
  Company Number: 2011AP001666

PATIENT
  Age: 43 Year
  Sex: Female

DRUGS (14)
  1. CODEINE PHOSPHATE (CODEINE PHOSPHATE) [Concomitant]
  2. ACETAMINOPHEN [Concomitant]
  3. HYOSCINE HBR HYT [Concomitant]
  4. ESTRADIOL [Concomitant]
  5. INFLUENZA VACCINE (INFUENZA VACCINE) [Concomitant]
  6. LORATADINE [Concomitant]
  7. PROGUANIL (PROGUANIL) [Concomitant]
  8. SERTRALINE HYDROCHLORIDE [Suspect]
     Dates: start: 20110712
  9. ACETAMINOPHEN [Concomitant]
  10. METRONIDAZOLE [Concomitant]
  11. NORETHISTERONE ACETATE (NORETHISTERONE ACETATE) [Concomitant]
  12. LEVOTHYROXINE SODIUM [Concomitant]
  13. MEBEVERINE HYDROCHLORIDE (MEBEVERINE HYDROCHLORIDE) [Concomitant]
  14. MEDROXYPROGESTERONE ACETATE [Concomitant]

REACTIONS (3)
  - LETHARGY [None]
  - FATIGUE [None]
  - HYPERSOMNIA [None]
